FAERS Safety Report 21556372 (Version 3)
Quarter: 2022Q4

REPORT INFORMATION
  Report Type: Report from Study
  Country: US (occurrence: US)
  Receive Date: 20221104
  Receipt Date: 20221228
  Transmission Date: 20230113
  Serious: Yes (Other)
  Sender: FDA-Public Use
  Company Number: US-HORIZON THERAPEUTICS-HZN-2022-007610

PATIENT

DRUGS (5)
  1. TEPEZZA [Suspect]
     Active Substance: TEPROTUMUMAB-TRBW
     Indication: Endocrine ophthalmopathy
     Dosage: FIRST INFUSION UNK
     Route: 042
     Dates: start: 20220916
  2. TEPEZZA [Suspect]
     Active Substance: TEPROTUMUMAB-TRBW
     Dosage: SECOND INFUSION UNK
     Route: 042
     Dates: start: 20221007
  3. SYNTHROID [Concomitant]
     Active Substance: LEVOTHYROXINE SODIUM
     Indication: Product used for unknown indication
     Route: 065
  4. CYMBALTA [Concomitant]
     Active Substance: DULOXETINE HYDROCHLORIDE
     Indication: Arthritis
     Route: 065
  5. TRAZODONE [Concomitant]
     Active Substance: TRAZODONE HYDROCHLORIDE
     Indication: Sleep disorder
     Route: 065

REACTIONS (10)
  - Type 2 diabetes mellitus [Recovering/Resolving]
  - Deafness bilateral [Recovering/Resolving]
  - Ear discomfort [Recovering/Resolving]
  - Rash [Recovering/Resolving]
  - Condition aggravated [Recovering/Resolving]
  - Rash erythematous [Recovering/Resolving]
  - Nausea [Recovered/Resolved]
  - Tinnitus [Recovering/Resolving]
  - Abdominal discomfort [Unknown]
  - Diplopia [Recovering/Resolving]

NARRATIVE: CASE EVENT DATE: 20220101
